FAERS Safety Report 5262304-2 (Version None)
Quarter: 2007Q1

REPORT INFORMATION
  Report Type: 
  Country: None (occurrence: None)
  Receive Date: 20070308
  Receipt Date: 20070308
  Transmission Date: 20070707
  Serious: Yes (Other)
  Sender: FDA-Public Use
  Company Number: None

PATIENT
  Age: 66 Year
  Sex: Female
  Weight: 73.4827 kg

DRUGS (1)
  1. LEVAQUIN [Suspect]
     Indication: SINUSITIS
     Dosage: ONE TABLET DAILY ORALLY
     Route: 048
     Dates: start: 20070118, end: 20070128

REACTIONS (2)
  - ARTHRALGIA [None]
  - MUSCLE SPASMS [None]
